FAERS Safety Report 8187377-9 (Version None)
Quarter: 2012Q1

REPORT INFORMATION
  Report Type: 
  Country: None (occurrence: None)
  Receive Date: 20120306
  Receipt Date: 20120227
  Transmission Date: 20120608
  Serious: Yes (Hospitalization, Other)
  Sender: FDA-Public Use
  Company Number: US-BAYER-2011-010996

PATIENT
  Age: 23 Year
  Sex: Female
  Weight: 72.562 kg

DRUGS (17)
  1. HUMALOG [Concomitant]
     Dosage: 100UNIT 1 UNIT PER 5 GRAMS CARBS
  2. ALPHABETIC DIABETIC VITAMIN [Concomitant]
  3. ASCORBIC ACID [Concomitant]
  4. INSULIN [Concomitant]
     Indication: DIABETES MELLITUS
  5. CYMBALTA [Concomitant]
     Dosage: 60 MG/24HR, QD
     Dates: start: 20080705
  6. LISINOPRIL [Concomitant]
     Dosage: 20 MG, QD
  7. FISH OIL [Concomitant]
     Dosage: 1000 MG, QD
  8. KEPPRA [Concomitant]
     Indication: CONVULSION
     Dosage: 500 MG, BID
     Dates: start: 20090131
  9. MIDRIN [Concomitant]
     Indication: HEADACHE
     Dosage: 325 MG, PRN
  10. SALINE NASAL SPRAY [Concomitant]
     Dosage: UNK UNK, PRN
  11. CERTA-VITE PERFORMANCE [Concomitant]
  12. IBUPROFEN TABLETS [Concomitant]
     Indication: DISCOMFORT
  13. ABILIFY [Concomitant]
     Indication: DEPRESSION
     Dosage: 5 MG, QD
     Dates: start: 20080101
  14. YAZ [Suspect]
     Indication: CONTRACEPTION
     Dosage: UNK
     Route: 048
     Dates: start: 20081001, end: 20091101
  15. TETRACYCLINE [Concomitant]
     Indication: ACNE
     Dosage: 500 MG, BID
  16. IBUPROFEN TABLETS [Concomitant]
     Indication: NASOPHARYNGITIS
     Dosage: 200 MG, PRN
  17. METOCLOPRAMIDE HYDROCHLORIDE [Concomitant]
     Indication: NAUSEA
     Dosage: 100 MG, Q6WK

REACTIONS (9)
  - INJURY [None]
  - CHOLECYSTITIS CHRONIC [None]
  - PAIN [None]
  - EMOTIONAL DISTRESS [None]
  - GALLBLADDER DISORDER [None]
  - ANXIETY [None]
  - GENERAL PHYSICAL HEALTH DETERIORATION [None]
  - INFECTION [None]
  - MOBILITY DECREASED [None]
